FAERS Safety Report 9116957 (Version 2)
Quarter: 2013Q1

REPORT INFORMATION
  Report Type: Spontaneous
  Country: US (occurrence: US)
  Receive Date: 20130225
  Receipt Date: 20130320
  Transmission Date: 20140127
  Serious: No
  Sender: FDA-Public Use
  Company Number: US-PFIZER INC-2013068198

PATIENT
  Age: 72 Year
  Sex: Female
  Weight: 61.22 kg

DRUGS (1)
  1. ADVIL [Suspect]
     Indication: PROCEDURAL PAIN
     Dosage: 200 MG, THREE TIMES A DAY
     Dates: start: 20130222

REACTIONS (2)
  - Hypersensitivity [Unknown]
  - Malaise [Unknown]
